FAERS Safety Report 9419652 (Version 1)
Quarter: 2013Q3

REPORT INFORMATION
  Report Type: Report from Study
  Country: MX (occurrence: MX)
  Receive Date: 20130725
  Receipt Date: 20130725
  Transmission Date: 20140515
  Serious: Yes (Other)
  Sender: FDA-Public Use
  Company Number: PHHY2013MX078726

PATIENT
  Age: 42 Year
  Sex: Female

DRUGS (2)
  1. TEGRETOL 200 LC [Suspect]
     Indication: EPILEPSY
     Dosage: 200 MG, TID
     Route: 048
  2. PLAQUENIL [Concomitant]
     Indication: ARTHRITIS
     Dosage: 1 DF, QD
     Dates: start: 2010

REACTIONS (6)
  - Cardiac disorder [Unknown]
  - Arthritis [Unknown]
  - Interstitial lung disease [Unknown]
  - Peripheral vascular disorder [Unknown]
  - Stress [Not Recovered/Not Resolved]
  - Memory impairment [Not Recovered/Not Resolved]
